FAERS Safety Report 8092121-X (Version None)
Quarter: 2012Q1

REPORT INFORMATION
  Report Type: 
  Country: None (occurrence: None)
  Receive Date: 20120129
  Receipt Date: 20111107
  Transmission Date: 20120608
  Serious: No
  Sender: FDA-Public Use
  Company Number: US-ABBOTT-11P-163-0871696-00

PATIENT
  Age: 50 Year
  Sex: Female

DRUGS (15)
  1. HYOSCYAMINE [Concomitant]
     Indication: PRODUCT USED FOR UNKNOWN INDICATION
     Dosage: ER
  2. FISH OIL [Concomitant]
     Indication: PRODUCT USED FOR UNKNOWN INDICATION
  3. ALIVE [Concomitant]
     Indication: VITAMIN SUPPLEMENTATION
     Dosage: DAILY
  4. HUMIRA [Suspect]
     Indication: CROHN'S DISEASE
     Dates: start: 20111007
  5. MERCAPTOPURINE [Concomitant]
     Indication: PRODUCT USED FOR UNKNOWN INDICATION
     Dosage: DAILY
  6. POTASSIUM CL ER [Concomitant]
     Indication: PRODUCT USED FOR UNKNOWN INDICATION
     Dosage: DAILY
  7. PREDNISONE TAB [Concomitant]
     Indication: PRODUCT USED FOR UNKNOWN INDICATION
     Dosage: DAILY
  8. ALIGN [Concomitant]
     Indication: PROBIOTIC THERAPY
     Dosage: DAILY
  9. FEROSOL [Concomitant]
     Indication: PRODUCT USED FOR UNKNOWN INDICATION
     Dosage: DAILY
  10. VITAMIN B-12 [Concomitant]
     Indication: PRODUCT USED FOR UNKNOWN INDICATION
  11. VIT C [Concomitant]
     Indication: PRODUCT USED FOR UNKNOWN INDICATION
     Dosage: DAILY
  12. PENTASA [Concomitant]
     Indication: PRODUCT USED FOR UNKNOWN INDICATION
  13. EZLAX STOOL SOFTENER [Concomitant]
     Indication: LAXATIVE SUPPORTIVE CARE
     Dosage: IN THE EVENING
  14. OMEGA 2 [Concomitant]
     Indication: PRODUCT USED FOR UNKNOWN INDICATION
  15. ACETAMINOPHEN [Concomitant]
     Indication: ARTHRITIS

REACTIONS (2)
  - ABDOMINAL PAIN UPPER [None]
  - BACK PAIN [None]
